FAERS Safety Report 7839105-1 (Version None)
Quarter: 2011Q4

REPORT INFORMATION
  Report Type: 
  Country: None (occurrence: None)
  Receive Date: 20111024
  Receipt Date: 20111011
  Transmission Date: 20120403
  Serious: Yes (Other)
  Sender: FDA-Public Use
  Company Number: AU-MYLANLABS-2011S1021610

PATIENT
  Age: 47 Year
  Sex: Female

DRUGS (4)
  1. PROPRANOLOL [Suspect]
     Route: 065
  2. ZIPRASIDONE HYDROCHLORIDE [Suspect]
     Indication: OVERDOSE
     Dosage: OVERDOSE OF 1.2G
     Route: 065
  3. DIAZEPAM [Suspect]
     Indication: OVERDOSE
     Dosage: OVERDOSE OF 250MG
     Route: 065
  4. VENLAFAXINE [Concomitant]
     Dosage: 225MG DAILY
     Route: 065

REACTIONS (4)
  - ELECTROCARDIOGRAM QT PROLONGED [None]
  - OVERDOSE [None]
  - SOMNOLENCE [None]
  - SINUS BRADYCARDIA [None]
